FAERS Safety Report 16455093 (Version 1)
Quarter: 2019Q2

REPORT INFORMATION
  Report Type: Spontaneous
  Country: US (occurrence: US)
  Receive Date: 20190619
  Receipt Date: 20190619
  Transmission Date: 20190711
  Serious: No
  Sender: FDA-Public Use
  Company Number: US-ROCHE-2253783

PATIENT
  Age: 56 Year
  Sex: Female

DRUGS (2)
  1. ACTEMRA [Suspect]
     Active Substance: TOCILIZUMAB
     Indication: SERONEGATIVE ARTHRITIS
     Dosage: ONGOING: NO
     Route: 058
     Dates: start: 20181226, end: 20190122
  2. ACTEMRA [Suspect]
     Active Substance: TOCILIZUMAB
     Indication: SPONDYLOARTHROPATHY
     Dosage: SECOND (LAST) INJECTION
     Route: 058
     Dates: start: 20190109

REACTIONS (6)
  - Musculoskeletal pain [Unknown]
  - Arthralgia [Not Recovered/Not Resolved]
  - Myalgia [Not Recovered/Not Resolved]
  - Chest discomfort [Unknown]
  - Pain [Unknown]
  - Hyperventilation [Unknown]
